FAERS Safety Report 7431848-7 (Version None)
Quarter: 2011Q2

REPORT INFORMATION
  Report Type: 
  Country: None (occurrence: None)
  Receive Date: 20110422
  Receipt Date: 20110412
  Transmission Date: 20111010
  Serious: Yes (Other)
  Sender: FDA-Public Use
  Company Number: ES-ELI_LILLY_AND_COMPANY-ES201104003573

PATIENT
  Sex: Female
  Weight: 65 kg

DRUGS (2)
  1. CALCIUM [Concomitant]
     Indication: OSTEOPOROSIS
     Dosage: UNK UNK, QD
     Route: 048
  2. FORTEO [Suspect]
     Indication: OSTEOPOROSIS
     Dosage: 20 UG, DAILY (1/D)
     Route: 058
     Dates: start: 20100215, end: 20110408

REACTIONS (7)
  - DELIRIUM [None]
  - RENAL IMPAIRMENT [None]
  - GENERALISED OEDEMA [None]
  - URINE ALBUMIN/CREATININE RATIO INCREASED [None]
  - MICROALBUMINURIA [None]
  - FACE OEDEMA [None]
  - SWELLING [None]
